FAERS Safety Report 5483695-3 (Version None)
Quarter: 2008Q1

REPORT INFORMATION
  Report Type: 
  Country: None (occurrence: None)
  Receive Date: 20071010
  Receipt Date: 20070924
  Transmission Date: 20080703
  Serious: Yes (Hospitalization)
  Sender: FDA-Public Use
  Company Number: WAES 0709USA04109

PATIENT
  Age: 64 Year
  Sex: Male
  Weight: 85.7298 kg

DRUGS (8)
  1. DECADRON [Suspect]
  2. ARANESP [Suspect]
     Indication: ANAEMIA
     Dosage: 500 MICROGM/SC  INJ
     Route: 058
     Dates: start: 20070813, end: 20070813
  3. ARANESP [Suspect]
     Indication: POST PROCEDURAL COMPLICATION
     Dosage: 500 MICROGM/SC  INJ
     Route: 058
     Dates: start: 20070813, end: 20070813
  4. GRANISETRON HCL [Suspect]
  5. OXALIPLATIN [Suspect]
  6. CAPECITABINE [Suspect]
     Dates: end: 20070820
  7. ZIAC [Concomitant]
  8. ASPIRIN [Concomitant]

REACTIONS (6)
  - ASTHENIA [None]
  - CONDITION AGGRAVATED [None]
  - DEHYDRATION [None]
  - DIARRHOEA [None]
  - ENTEROCOLITIS [None]
  - POST PROCEDURAL COMPLICATION [None]
